FAERS Safety Report 7959620-X (Version None)
Quarter: 2011Q4

REPORT INFORMATION
  Report Type: 
  Country: None (occurrence: None)
  Receive Date: 20111206
  Receipt Date: 20111202
  Transmission Date: 20120403
  Serious: Yes (Hospitalization, Other)
  Sender: FDA-Public Use
  Company Number: US-BRISTOL-MYERS SQUIBB COMPANY-14346258

PATIENT
  Age: 79 Year
  Sex: Female

DRUGS (9)
  1. ZOFRAN [Concomitant]
     Route: 048
     Dates: start: 20080729
  2. PROTONIX [Concomitant]
     Route: 048
     Dates: start: 20080919
  3. VALIUM [Concomitant]
     Dates: start: 20080724
  4. SYNTHROID [Concomitant]
  5. PREDNISONE TAB [Concomitant]
  6. BENADRYL [Concomitant]
     Dates: start: 20080724
  7. NAPROXEN [Concomitant]
     Dates: start: 20080919
  8. IPILIMUMAB [Suspect]
     Indication: MALIGNANT MELANOMA
     Dosage: THERAPY STARTED ON: 24-JUN-2008
     Route: 042
     Dates: start: 20080624, end: 20080826
  9. M.V.I. [Concomitant]
     Dates: start: 20080301

REACTIONS (4)
  - PYREXIA [None]
  - AZOTAEMIA [None]
  - DIARRHOEA [None]
  - HYPONATRAEMIA [None]
